FAERS Safety Report 19476726 (Version 1)
Quarter: 2021Q2

REPORT INFORMATION
  Report Type: Spontaneous
  Country: US (occurrence: US)
  Receive Date: 20210630
  Receipt Date: 20210630
  Transmission Date: 20210717
  Serious: No
  Sender: FDA-Public Use
  Company Number: US-GW PHARMA-202106USGW03082

PATIENT

DRUGS (1)
  1. EPIDIOLEX [Suspect]
     Active Substance: CANNABIDIOL
     Indication: LENNOX-GASTAUT SYNDROME
     Dosage: 410 MILLIGRAM
     Route: 048
     Dates: start: 20200901

REACTIONS (3)
  - Diarrhoea [Not Recovered/Not Resolved]
  - Weight increased [Unknown]
  - Agitation [Unknown]

NARRATIVE: CASE EVENT DATE: 2021
